FAERS Safety Report 6234344-8 (Version None)
Quarter: 2009Q2

REPORT INFORMATION
  Report Type: 
  Country: None (occurrence: None)
  Receive Date: 20090615
  Receipt Date: 20090511
  Transmission Date: 20091009
  Serious: No
  Sender: FDA-Public Use
  Company Number: DSA_33624_2009

PATIENT
  Sex: Female

DRUGS (1)
  1. XENAZINE [Suspect]
     Indication: HUNTINGTON'S CHOREA
     Dosage: 12.5 MG QD
     Dates: start: 20081205, end: 20081205

REACTIONS (1)
  - NERVOUSNESS [None]
